FAERS Safety Report 14817605 (Version 2)
Quarter: 2018Q3

REPORT INFORMATION
  Report Type: Report from Study
  Country: None (occurrence: CA)
  Receive Date: 20180426
  Receipt Date: 20180802
  Transmission Date: 20181010
  Serious: Yes (Death, Other)
  Sender: FDA-Public Use
  Company Number: CA-ABBVIE-18K-028-2336757-00

PATIENT
  Sex: Male

DRUGS (1)
  1. HUMIRA [Suspect]
     Active Substance: ADALIMUMAB
     Indication: CROHN^S DISEASE
     Route: 058
     Dates: start: 20150428

REACTIONS (5)
  - Irritable bowel syndrome [Unknown]
  - Chronic kidney disease [Fatal]
  - Pyrexia [Fatal]
  - Post procedural cellulitis [Fatal]
  - Leg amputation [Unknown]
